FAERS Safety Report 24095488 (Version 1)
Quarter: 2024Q3

REPORT INFORMATION
  Report Type: Report from Study
  Country: US (occurrence: None)
  Receive Date: 20240716
  Receipt Date: 20240716
  Transmission Date: 20241017
  Serious: Yes (Other)
  Sender: ASTRAZENECA
  Company Number: 2020SE80287

PATIENT
  Sex: Male

DRUGS (10)
  1. CALQUENCE [Suspect]
     Active Substance: ACALABRUTINIB
     Indication: Chronic lymphocytic leukaemia
     Route: 048
     Dates: start: 20200602, end: 20200618
  2. IBRUTINIB [Suspect]
     Active Substance: IBRUTINIB
  3. ATORVASTATIN [Concomitant]
     Active Substance: ATORVASTATIN
  4. METOPROLOL SUCCINATE [Concomitant]
     Active Substance: METOPROLOL SUCCINATE
  5. LIPITOR [Concomitant]
     Active Substance: ATORVASTATIN CALCIUM
  6. POTASSIUM IODIDE [Concomitant]
     Active Substance: POTASSIUM IODIDE
  7. PEPCID [Concomitant]
     Active Substance: FAMOTIDINE
  8. VITAMIN C [Concomitant]
     Active Substance: ASCORBIC ACID
  9. HYDROCHLOROTHIAZIDE [Concomitant]
     Active Substance: HYDROCHLOROTHIAZIDE
  10. ASPIRIN [Concomitant]
     Active Substance: ASPIRIN

REACTIONS (1)
  - Blood urine present [Recovering/Resolving]
